FAERS Safety Report 11189866 (Version 1)
Quarter: 2015Q2

REPORT INFORMATION
  Report Type: Spontaneous
  Country: US (occurrence: US)
  Receive Date: 20150615
  Receipt Date: 20150615
  Transmission Date: 20150821
  Serious: No
  Sender: FDA-Public Use
  Company Number: US-PFIZER INC-2015173803

PATIENT
  Age: 57 Year
  Sex: Male
  Weight: 77 kg

DRUGS (11)
  1. CELEXA [Concomitant]
     Active Substance: CITALOPRAM HYDROBROMIDE
     Dosage: 20 MG, 1X/DAY
  2. LYRICA [Suspect]
     Active Substance: PREGABALIN
     Indication: DIABETIC NEUROPATHY
     Dosage: 75 MG, 3X/DAY
     Dates: start: 2015
  3. FARXIGA [Concomitant]
     Active Substance: DAPAGLIFLOZIN PROPANEDIOL
     Indication: DIABETES MELLITUS
     Dosage: 5 MG, 1X/DAY
  4. LISINOPRIL. [Concomitant]
     Active Substance: LISINOPRIL
     Dosage: 5 MG, 1X/DAY
  5. LOPRESSOR [Concomitant]
     Active Substance: METOPROLOL TARTRATE
     Dosage: 12.5 MG, 2X/DAY
  6. KLONOPIN [Concomitant]
     Active Substance: CLONAZEPAM
     Dosage: 0.1 MG, 1X/DAY
  7. NORCO [Concomitant]
     Active Substance: ACETAMINOPHEN\HYDROCODONE BITARTRATE
     Indication: NEUROPATHY PERIPHERAL
     Dosage: 10 MG, 4X/DAY
  8. LYRICA [Suspect]
     Active Substance: PREGABALIN
     Dosage: 75 MG, 1X/DAY
  9. NORCO [Concomitant]
     Active Substance: ACETAMINOPHEN\HYDROCODONE BITARTRATE
     Indication: OSTEOARTHRITIS
  10. JANUVIA [Concomitant]
     Active Substance: SITAGLIPTIN PHOSPHATE
     Indication: DIABETES MELLITUS
     Dosage: 100 MG, 1X/DAY
  11. ZOCOR [Concomitant]
     Active Substance: SIMVASTATIN
     Dosage: 20 MG, 1X/DAY

REACTIONS (5)
  - Pain [Unknown]
  - Drug prescribing error [Unknown]
  - Middle insomnia [Unknown]
  - Muscle spasms [Unknown]
  - Activities of daily living impaired [Unknown]
